FAERS Safety Report 7693544-0 (Version None)
Quarter: 2011Q3

REPORT INFORMATION
  Report Type: 
  Country: None (occurrence: None)
  Receive Date: 20110819
  Receipt Date: 20110808
  Transmission Date: 20111222
  Serious: Yes (Other)
  Sender: FDA-Public Use
  Company Number: BE-SANOFI-AVENTIS-2011SA051572

PATIENT
  Age: 6 Year
  Sex: Male

DRUGS (3)
  1. RASBURICASE [Suspect]
     Route: 042
     Dates: start: 20091121, end: 20091121
  2. PREDNISOLONE [Concomitant]
     Route: 065
  3. COLISTIN [Concomitant]
     Route: 065

REACTIONS (13)
  - BLOOD AMYLASE INCREASED [None]
  - LIPASE INCREASED [None]
  - HEPATIC ENZYME INCREASED [None]
  - ASPARTATE AMINOTRANSFERASE INCREASED [None]
  - HAEMOLYTIC ANAEMIA [None]
  - BLOOD LACTATE DEHYDROGENASE INCREASED [None]
  - ABDOMINAL PAIN [None]
  - ALANINE AMINOTRANSFERASE INCREASED [None]
  - BLOOD BILIRUBIN INCREASED [None]
  - BLOOD ALKALINE PHOSPHATASE INCREASED [None]
  - CYANOSIS [None]
  - PANCREATITIS [None]
  - METHAEMOGLOBINAEMIA [None]
